FAERS Safety Report 4586803-1 (Version None)
Quarter: 2005Q1

REPORT INFORMATION
  Report Type: 
  Country: None (occurrence: None)
  Receive Date: 20050217
  Receipt Date: 20050217
  Transmission Date: 20050727
  Serious: Yes (Life-Threatening)
  Sender: FDA-Public Use
  Company Number: None

PATIENT
  Age: 87 Year
  Sex: Female
  Weight: 55 kg

DRUGS (5)
  1. LEVAQUIN [Suspect]
     Indication: PNEUMONIA
     Dosage: 250 MG   DAILY   ORAL
     Route: 048
  2. SYNTHROID [Concomitant]
  3. VERAPAMIL [Concomitant]
  4. ACETAMINOPHEN [Concomitant]
  5. AMIODARONE [Concomitant]

REACTIONS (1)
  - TORSADE DE POINTES [None]
